FAERS Safety Report 23298056 (Version 2)
Quarter: 2023Q4

REPORT INFORMATION
  Report Type: Report from Study
  Country: JP (occurrence: JP)
  Receive Date: 20231214
  Receipt Date: 20231220
  Transmission Date: 20240110
  Serious: Yes (Hospitalization)
  Sender: FDA-Public Use
  Company Number: JP-shionogi-202314022_EXJ_P_1

PATIENT
  Age: 52 Year
  Sex: Male
  Weight: 91.6 kg

DRUGS (9)
  1. CYCLOPHOSPHAMIDE [Suspect]
     Active Substance: CYCLOPHOSPHAMIDE
     Dosage: 40 MG/KG, ONCE A DAY
     Route: 065
     Dates: start: 20230213, end: 20230213
  2. URSODIOL [Concomitant]
     Active Substance: URSODIOL
     Dosage: 300 MG, EVERY 8 HRS
     Route: 048
     Dates: start: 20230210
  3. MIYA-BM [Concomitant]
     Active Substance: CLOSTRIDIUM BUTYRICUM SPORES STRAIN M-55
     Indication: Constipation prophylaxis
     Dosage: 1 DOSAGE FORM, EVERY 8 HOURS
     Route: 048
     Dates: start: 20230211
  4. TACROLIMUS [Concomitant]
     Active Substance: TACROLIMUS
     Indication: Immunosuppression
     Dosage: 1 MG, ONCE A DAY
     Route: 048
     Dates: start: 20230311
  5. VONOPRAZAN FUMARATE [Concomitant]
     Active Substance: VONOPRAZAN FUMARATE
     Indication: Gastritis prophylaxis
     Dosage: 20 MG, ONCE A DAY
     Route: 048
     Dates: start: 20230213
  6. Insulin lispro bs [Concomitant]
     Indication: Type 2 diabetes mellitus
     Dosage: 8 IU, ONCE A DAY
     Route: 058
     Dates: start: 20230221
  7. VICTOZA [Concomitant]
     Active Substance: LIRAGLUTIDE
     Indication: Type 2 diabetes mellitus
     Dosage: 1.2 MG, ONCE A DAY
     Route: 058
     Dates: start: 20230704
  8. ENTRESTO [Concomitant]
     Active Substance: SACUBITRIL\VALSARTAN
     Indication: Hypertension
     Dosage: 400 MG, QD
     Route: 048
     Dates: start: 20231109
  9. ENTRESTO [Concomitant]
     Active Substance: SACUBITRIL\VALSARTAN
     Indication: Renal disorder

REACTIONS (1)
  - Hepatocellular carcinoma [Not Recovered/Not Resolved]

NARRATIVE: CASE EVENT DATE: 20231121
